FAERS Safety Report 10427135 (Version 1)
Quarter: 2014Q3

REPORT INFORMATION
  Report Type: Spontaneous
  Country: US (occurrence: None)
  Receive Date: 20140725
  Receipt Date: 20140725
  Transmission Date: 20150326
  Serious: No
  Sender: FDA-Public Use
  Company Number: AP356-00935-SPO-US

PATIENT
  Sex: Female

DRUGS (1)
  1. BELVIQ [Suspect]
     Active Substance: LORCASERIN HYDROCHLORIDE
     Indication: FOOD CRAVING
     Route: 048
     Dates: start: 20140610, end: 20140612

REACTIONS (4)
  - Mental impairment [None]
  - Vision blurred [None]
  - Sensory disturbance [None]
  - Cough [None]

NARRATIVE: CASE EVENT DATE: 201406
